FAERS Safety Report 8951102 (Version 1)
Quarter: 2012Q4

REPORT INFORMATION
  Report Type: 
  Country: US (occurrence: US)
  Receive Date: 20121207
  Receipt Date: 20121207
  Transmission Date: 20130627
  Serious: Yes (Other)
  Sender: FDA-Public Use
  Company Number: US-ROXANE LABORATORIES, INC.-2012-RO-02499RO

PATIENT
  Age: 14 Year
  Sex: Female

DRUGS (1)
  1. OXYMORPHONE HYDROCHLORIDE [Suspect]

REACTIONS (7)
  - Deafness [Recovered/Resolved]
  - Mental status changes [Recovered/Resolved]
  - Tachycardia [Recovered/Resolved]
  - Renal impairment [Recovered/Resolved]
  - Troponin increased [Recovered/Resolved]
  - Transaminases increased [Recovered/Resolved]
  - Drug screen positive [Recovered/Resolved]
